FAERS Safety Report 5761981-7 (Version None)
Quarter: 2008Q2

REPORT INFORMATION
  Report Type: 
  Country: None (occurrence: None)
  Receive Date: 20080603
  Receipt Date: 20080519
  Transmission Date: 20081010
  Serious: Yes (Death)
  Sender: FDA-Public Use
  Company Number: 100#08#2008-02708

PATIENT
  Age: 45 Year
  Sex: Male

DRUGS (5)
  1. BETASERON [Suspect]
     Indication: MULTIPLE SCLEROSIS
     Dosage: 8 MILION IU, EVERY OTHER DAY
     Route: 042
  2. FUROSEMIDE [Concomitant]
  3. PREDNISONE TAB [Concomitant]
  4. RANTIDINE (RANITIDINE) [Concomitant]
  5. DILANTIN [Concomitant]

REACTIONS (5)
  - LUNG NEOPLASM MALIGNANT [None]
  - OEDEMA PERIPHERAL [None]
  - PNEUMONIA [None]
  - PULMONARY CONGESTION [None]
  - PULMONARY THROMBOSIS [None]
